FAERS Safety Report 7212118-9 (Version None)
Quarter: 2010Q4

REPORT INFORMATION
  Report Type: 
  Country: None (occurrence: None)
  Receive Date: 20101227
  Receipt Date: 20100720
  Transmission Date: 20110411
  Serious: Yes (Hospitalization)
  Sender: FDA-Public Use
  Company Number: ALA_00736_2010

PATIENT
  Sex: Female
  Weight: 86.1834 kg

DRUGS (17)
  1. REGLAN [Suspect]
     Indication: DIABETIC GASTROPARESIS
     Dosage: (DF ORAL)
     Route: 048
     Dates: start: 19970901, end: 20091101
  2. COGENTIN [Concomitant]
  3. LOVENOX [Concomitant]
  4. LASIX [Concomitant]
  5. NOVOLIN /00030501/ [Concomitant]
  6. NOVOLIN 70/30 [Concomitant]
  7. CLARITIN /00917501/ [Concomitant]
  8. GLUCOPHAGE [Concomitant]
  9. CHANTIX [Concomitant]
  10. OMEPRAZOLE [Concomitant]
  11. SIMVASTATIN [Concomitant]
  12. POTASSIUM CHLORIDE [Concomitant]
  13. ALBUTEROL SULFATE AND IPRATROPIUM BROMIDE [Concomitant]
  14. UNSPECIFIED HERBAL [Concomitant]
  15. ANOREXIANTS [Concomitant]
  16. VITAMIN B12 NOS [Concomitant]
  17. MULTI-VITAMINS [Concomitant]

REACTIONS (52)
  - ANION GAP INCREASED [None]
  - APHASIA [None]
  - BASOPHIL COUNT INCREASED [None]
  - BLOOD ALBUMIN DECREASED [None]
  - BLOOD CALCIUM DECREASED [None]
  - BLOOD CREATININE INCREASED [None]
  - BLOOD GLUCOSE INCREASED [None]
  - BONE PAIN [None]
  - CEREBRAL ATROPHY [None]
  - CHEST PAIN [None]
  - CONFUSIONAL STATE [None]
  - DIABETIC NEUROPATHY [None]
  - DIZZINESS [None]
  - DYSARTHRIA [None]
  - DYSPHAGIA [None]
  - DYSPNOEA [None]
  - ECONOMIC PROBLEM [None]
  - EMOTIONAL DISORDER [None]
  - EXCORIATION [None]
  - EXTRAPYRAMIDAL DISORDER [None]
  - FALL [None]
  - HYPOGLYCAEMIA [None]
  - KETONURIA [None]
  - LEUKOCYTOSIS [None]
  - LYMPHOCYTE COUNT INCREASED [None]
  - MEAN CELL HAEMOGLOBIN INCREASED [None]
  - MEAN CELL VOLUME INCREASED [None]
  - MENTAL STATUS CHANGES [None]
  - MONOCYTE COUNT INCREASED [None]
  - NAUSEA [None]
  - NEUTROPHIL COUNT INCREASED [None]
  - OESOPHAGEAL STENOSIS [None]
  - PEPTIC ULCER [None]
  - PLATELET COUNT INCREASED [None]
  - PNEUMONIA [None]
  - PRODUCTIVE COUGH [None]
  - PROTEIN TOTAL DECREASED [None]
  - PYREXIA [None]
  - RALES [None]
  - RED CELL DISTRIBUTION WIDTH INCREASED [None]
  - RIB FRACTURE [None]
  - SYSTEMIC INFLAMMATORY RESPONSE SYNDROME [None]
  - TARDIVE DYSKINESIA [None]
  - TONGUE DISORDER [None]
  - TREMOR [None]
  - UPPER RESPIRATORY TRACT INFECTION [None]
  - URINARY TRACT INFECTION [None]
  - VASCULAR DEMENTIA [None]
  - VERTIGO [None]
  - VOMITING [None]
  - WEIGHT DECREASED [None]
  - WHITE BLOOD CELL COUNT INCREASED [None]
